FAERS Safety Report 11468232 (Version 2)
Quarter: 2015Q3

REPORT INFORMATION
  Report Type: Spontaneous
  Country: US (occurrence: US)
  Receive Date: 20150903
  Receipt Date: 20150903
  Transmission Date: 20151125
  Serious: No
  Sender: FDA-Public Use
  Company Number: US-ELI_LILLY_AND_COMPANY-US201108004982

PATIENT
  Age: 73 Year
  Sex: Female

DRUGS (5)
  1. AVAPRO [Concomitant]
     Active Substance: IRBESARTAN
  2. CYMBALTA [Suspect]
     Active Substance: DULOXETINE HYDROCHLORIDE
     Dosage: 60 MG, QD
  3. DRUG USED IN DIABETES [Concomitant]
     Active Substance: UNSPECIFIED INGREDIENT
     Indication: DIABETES MELLITUS
     Dosage: UNK, OTHER
     Dates: start: 1971
  4. AMBIEN [Concomitant]
     Active Substance: ZOLPIDEM TARTRATE
  5. CYMBALTA [Suspect]
     Active Substance: DULOXETINE HYDROCHLORIDE
     Indication: PAIN
     Dosage: 30 MG, QD

REACTIONS (8)
  - Pain [Unknown]
  - Fatigue [Unknown]
  - Drug effect decreased [Recovered/Resolved]
  - Irritability [Unknown]
  - Asthenia [Unknown]
  - Lethargy [Unknown]
  - Depression [Unknown]
  - Insomnia [Unknown]
